FAERS Safety Report 5013002-1 (Version None)
Quarter: 2006Q2

REPORT INFORMATION
  Report Type: 
  Country: None (occurrence: None)
  Receive Date: 20060530
  Receipt Date: 20060517
  Transmission Date: 20061013
  Serious: Yes (Hospitalization)
  Sender: FDA-Public Use
  Company Number: FR-BRISTOL-MYERS SQUIBB COMPANY-13387311

PATIENT
  Age: 4 Year
  Sex: Male

DRUGS (3)
  1. ENDOXAN [Suspect]
     Indication: NEUROBLASTOMA
     Route: 042
     Dates: start: 20060124, end: 20060129
  2. ADRIBLASTINE [Suspect]
     Indication: NEUROBLASTOMA
     Route: 042
     Dates: start: 20060124, end: 20060129
  3. ONCOVIN [Suspect]
     Indication: NEUROBLASTOMA
     Route: 042
     Dates: start: 20060124, end: 20060129

REACTIONS (3)
  - ENCEPHALITIS INFLUENZAL [None]
  - NEUTROPENIA [None]
  - SECONDARY IMMUNODEFICIENCY [None]
